FAERS Safety Report 12640977 (Version 1)
Quarter: 2016Q3

REPORT INFORMATION
  Report Type: Spontaneous
  Country: US (occurrence: US)
  Receive Date: 20160810
  Receipt Date: 20160810
  Transmission Date: 20161109
  Serious: No
  Sender: FDA-Public Use
  Company Number: US-BEH-2016072207

PATIENT
  Sex: Male
  Weight: 64.4 kg

DRUGS (21)
  1. HIZENTRA [Suspect]
     Active Substance: HUMAN IMMUNOGLOBULIN G
     Indication: IMMUNODEFICIENCY COMMON VARIABLE
     Dosage: 10 G, QW
     Route: 058
     Dates: start: 20131108
  2. LMX                                /00033401/ [Concomitant]
  3. ACETAMINOPHEN. [Concomitant]
     Active Substance: ACETAMINOPHEN
  4. RAPAMUNE [Concomitant]
     Active Substance: SIROLIMUS
  5. LEXAPRO [Concomitant]
     Active Substance: ESCITALOPRAM OXALATE
  6. LORATADINE. [Concomitant]
     Active Substance: LORATADINE
  7. LOSARTAN AND HYDROCHLOROTHIAZIDE [Concomitant]
     Active Substance: HYDROCHLOROTHIAZIDE\LOSARTAN POTASSIUM
  8. PRAVASTATIN. [Concomitant]
     Active Substance: PRAVASTATIN
  9. RANITIDINE. [Concomitant]
     Active Substance: RANITIDINE
  10. EPIPEN [Concomitant]
     Active Substance: EPINEPHRINE
  11. TACROLIMUS. [Concomitant]
     Active Substance: TACROLIMUS
  12. VALCYTE [Concomitant]
     Active Substance: VALGANCICLOVIR HYDROCHLORIDE
  13. POLYSACCHARIDE IRON [Concomitant]
  14. DIPHENHYDRAMINE. [Concomitant]
     Active Substance: DIPHENHYDRAMINE
  15. LIDOCAINE/PRILOCAINE [Concomitant]
     Active Substance: LIDOCAINE\PRILOCAINE
  16. AUGMENTIN [Concomitant]
     Active Substance: AMOXICILLIN\CLAVULANATE POTASSIUM
  17. FOLIC ACID. [Concomitant]
     Active Substance: FOLIC ACID
  18. ASPIRIN. [Concomitant]
     Active Substance: ASPIRIN
  19. MAGNESIUM [Concomitant]
     Active Substance: MAGNESIUM
  20. COZAAR [Concomitant]
     Active Substance: LOSARTAN POTASSIUM
  21. PREDNISONE. [Concomitant]
     Active Substance: PREDNISONE

REACTIONS (1)
  - Gastroenteritis viral [Unknown]
